FAERS Safety Report 6503922-0 (Version None)
Quarter: 2009Q4

REPORT INFORMATION
  Report Type: 
  Country: None (occurrence: None)
  Receive Date: 20091217
  Receipt Date: 20091214
  Transmission Date: 20100525
  Serious: Yes (Hospitalization)
  Sender: FDA-Public Use
  Company Number: US-MERCK-0709USA04408

PATIENT
  Age: 63 Year
  Sex: Female

DRUGS (2)
  1. VYTORIN [Suspect]
     Indication: BLOOD CHOLESTEROL
     Route: 048
     Dates: start: 20060601, end: 20060901
  2. METFORMIN [Concomitant]
     Route: 065

REACTIONS (18)
  - ABASIA [None]
  - BALANCE DISORDER [None]
  - BLOOD PRESSURE INCREASED [None]
  - CARDIAC DISORDER [None]
  - CARDIOMEGALY [None]
  - DECREASED APPETITE [None]
  - DIABETES MELLITUS INADEQUATE CONTROL [None]
  - DYSPNOEA [None]
  - FATIGUE [None]
  - FLANK PAIN [None]
  - HEART INJURY [None]
  - INTERNAL INJURY [None]
  - MUSCULAR WEAKNESS [None]
  - NERVOUS SYSTEM DISORDER [None]
  - RENAL IMPAIRMENT [None]
  - RESPIRATORY DISORDER [None]
  - VISUAL ACUITY REDUCED [None]
  - WEIGHT INCREASED [None]
